FAERS Safety Report 8257584-5 (Version None)
Quarter: 2012Q2

REPORT INFORMATION
  Report Type: 
  Country: None (occurrence: None)
  Receive Date: 20120403
  Receipt Date: 20120328
  Transmission Date: 20120825
  Serious: Yes (Other)
  Sender: FDA-Public Use
  Company Number: US-ELI_LILLY_AND_COMPANY-US201203008603

PATIENT
  Sex: Female

DRUGS (6)
  1. BYETTA [Suspect]
     Dosage: 10 UG, BID
     Route: 058
  2. METFORMIN HCL [Concomitant]
     Indication: TYPE 2 DIABETES MELLITUS
     Dosage: 1000 MG, BID
  3. BYETTA [Suspect]
     Dosage: 5 UG, BID
     Route: 058
  4. BYETTA [Suspect]
     Indication: TYPE 2 DIABETES MELLITUS
     Dosage: 5 UG, BID
     Route: 058
     Dates: start: 20100101
  5. BYETTA [Suspect]
     Dosage: 10 UG, BID
     Route: 058
  6. GLIMEPIRIDE [Concomitant]
     Indication: TYPE 2 DIABETES MELLITUS
     Dosage: 1 MG, QD

REACTIONS (3)
  - BLOOD GLUCOSE INCREASED [None]
  - OVARIAN CANCER STAGE III [None]
  - UNDERDOSE [None]
